FAERS Safety Report 19622658 (Version 1)
Quarter: 2021Q3

REPORT INFORMATION
  Report Type: Spontaneous
  Country: US (occurrence: US)
  Receive Date: 20210728
  Receipt Date: 20210728
  Transmission Date: 20211014
  Serious: No
  Sender: FDA-Public Use
  Company Number: US-ALM-HQ-US-2021-0875

PATIENT
  Sex: Female

DRUGS (1)
  1. KLISYRI [Suspect]
     Active Substance: TIRBANIBULIN
     Dates: start: 20210422

REACTIONS (4)
  - Application site exfoliation [Unknown]
  - Application site vesicles [Unknown]
  - Application site erythema [Unknown]
  - Intentional product misuse [Unknown]
